FAERS Safety Report 8272665-8 (Version None)
Quarter: 2012Q2

REPORT INFORMATION
  Report Type: 
  Country: None (occurrence: None)
  Receive Date: 20120411
  Receipt Date: 20120402
  Transmission Date: 20120825
  Serious: Yes (Hospitalization)
  Sender: FDA-Public Use
  Company Number: FR-BAXTER-2012BAX001881

PATIENT
  Sex: Female

DRUGS (11)
  1. ANAFRANIL [Concomitant]
     Route: 065
  2. FEMARA [Suspect]
     Indication: BREAST CANCER
     Route: 065
     Dates: start: 20040101, end: 20090101
  3. EXFORGE [Concomitant]
     Route: 065
  4. LEXOMIL [Concomitant]
     Route: 065
  5. FLUOROURACIL [Suspect]
     Indication: BREAST CANCER
     Route: 042
     Dates: start: 19981001, end: 19990101
  6. AROMASIN [Suspect]
     Indication: BREAST CANCER
     Route: 048
     Dates: start: 20110305
  7. FENOFIBRATE [Concomitant]
     Route: 065
  8. EPIRUBICIN HYDROCHLORIDE [Suspect]
     Indication: BREAST CANCER
     Route: 042
     Dates: start: 19981001, end: 19990101
  9. NOLVADEX [Suspect]
     Indication: BREAST CANCER
     Route: 048
     Dates: start: 19910101, end: 20040101
  10. CYCLOPHOSPHAMIDE [Suspect]
     Indication: BREAST CANCER
     Route: 042
     Dates: start: 19981001, end: 19990101
  11. PREVISCAN                          /00789001/ [Concomitant]
     Route: 065
     Dates: start: 20110601

REACTIONS (1)
  - CHRONIC LYMPHOCYTIC LEUKAEMIA [None]
